FAERS Safety Report 7972004-3 (Version None)
Quarter: 2011Q4

REPORT INFORMATION
  Report Type: 
  Country: None (occurrence: None)
  Receive Date: 20111212
  Receipt Date: 20111202
  Transmission Date: 20120403
  Serious: Yes (Other)
  Sender: FDA-Public Use
  Company Number: CN-ASTRAZENECA-2011SE73412

PATIENT
  Sex: Female

DRUGS (3)
  1. PARECOXIB SODIUM [Suspect]
     Dosage: 5 ML
     Route: 042
  2. FENTANYL [Suspect]
     Dosage: 50 UG
     Route: 042
  3. PROPOFOL [Suspect]
     Dosage: 3 MG/KG
     Route: 042

REACTIONS (7)
  - RESTLESSNESS [None]
  - ABDOMINAL PAIN UPPER [None]
  - TONGUE PARALYSIS [None]
  - NAUSEA [None]
  - RESPIRATORY ARREST [None]
  - AGITATION [None]
  - VOMITING [None]
